FAERS Safety Report 9590331 (Version 1)
Quarter: 2013Q4

REPORT INFORMATION
  Report Type: Spontaneous
  Country: JP (occurrence: JP)
  Receive Date: 20131003
  Receipt Date: 20131003
  Transmission Date: 20140711
  Serious: Yes (Other)
  Sender: FDA-Public Use
  Company Number: JP-MYLANLABS-2013S1021314

PATIENT
  Age: 61 Year
  Sex: Female

DRUGS (2)
  1. CARBOPLATIN [Suspect]
     Indication: CERVIX CARCINOMA
     Dosage: DOSED AT AREA UNDER THE CURVE 6/MG/MIN/ML ON D1 OF 21-D CYCLE
     Route: 042
  2. DOCETAXEL [Suspect]
     Indication: CERVIX CARCINOMA
     Dosage: 60 MG/M2 ON D1 OF 21-D CYCLE
     Route: 042

REACTIONS (3)
  - Neutropenia [Unknown]
  - Decreased appetite [Unknown]
  - Fatigue [Unknown]
